FAERS Safety Report 16156379 (Version 3)
Quarter: 2019Q4

REPORT INFORMATION
  Report Type: Report from Study
  Country: US (occurrence: US)
  Receive Date: 20190404
  Receipt Date: 20191114
  Transmission Date: 20200122
  Serious: Yes (Other)
  Sender: FDA-Public Use
  Company Number: PHEH2019US014339

PATIENT
  Age: 57 Year
  Sex: Female

DRUGS (2)
  1. COSENTYX [Suspect]
     Active Substance: SECUKINUMAB
     Indication: PSORIASIS
     Dosage: 300 MG, QMO
     Route: 058
  2. COSENTYX [Suspect]
     Active Substance: SECUKINUMAB
     Indication: PSORIATIC ARTHROPATHY

REACTIONS (7)
  - Hernia [Unknown]
  - Abdominal pain [Unknown]
  - Therapeutic response shortened [Unknown]
  - Arthralgia [Unknown]
  - Rhinorrhoea [Recovered/Resolved]
  - Drug hypersensitivity [Recovered/Resolved]
  - Nasopharyngitis [Recovered/Resolved]
